FAERS Safety Report 15207470 (Version 1)
Quarter: 2018Q3

REPORT INFORMATION
  Report Type: Spontaneous
  Country: US (occurrence: US)
  Receive Date: 20180727
  Receipt Date: 20180727
  Transmission Date: 20181010
  Serious: No
  Sender: FDA-Public Use
  Company Number: US-ASTRAZENECA-2018SE92293

PATIENT
  Sex: Female

DRUGS (2)
  1. PRAZOSIN. [Concomitant]
     Active Substance: PRAZOSIN
  2. SEROQUEL XR [Suspect]
     Active Substance: QUETIAPINE FUMARATE
     Indication: PRODUCT USE ISSUE
     Route: 048

REACTIONS (3)
  - Weight increased [Unknown]
  - Nightmare [Unknown]
  - Condition aggravated [Unknown]
